FAERS Safety Report 9410095 (Version 1)
Quarter: 2013Q3

REPORT INFORMATION
  Report Type: Spontaneous
  Country: GB (occurrence: GB)
  Receive Date: 20130719
  Receipt Date: 20130719
  Transmission Date: 20140515
  Serious: Yes (Other)
  Sender: FDA-Public Use
  Company Number: GB-PFIZER INC-2013210173

PATIENT
  Age: 23 Year
  Sex: Male
  Weight: 111 kg

DRUGS (2)
  1. CHAMPIX [Suspect]
     Dosage: UNK
     Dates: start: 20130531
  2. LOPERAMIDE [Concomitant]
     Dosage: UNK
     Dates: start: 20130320

REACTIONS (2)
  - Abdominal pain upper [Recovered/Resolved]
  - Irritable bowel syndrome [Unknown]
